FAERS Safety Report 18501894 (Version 1)
Quarter: 2020Q4

REPORT INFORMATION
  Report Type: Spontaneous
  Country: JP (occurrence: JP)
  Receive Date: 20201113
  Receipt Date: 20201113
  Transmission Date: 20210114
  Serious: Yes (Other)
  Sender: FDA-Public Use
  Company Number: JP-UCBSA-2020045033

PATIENT
  Age: 75 Year
  Sex: Male

DRUGS (1)
  1. E KEPPRA [Suspect]
     Active Substance: LEVETIRACETAM
     Indication: PRODUCT USED FOR UNKNOWN INDICATION
     Dosage: 500 MG ONCE DAILY WITH SUPPLEMENTAL ADMINISTRATION AT 250 MG FOLLOWING DIALYSIS
     Route: 048

REACTIONS (2)
  - Status epilepticus [Unknown]
  - Off label use [Unknown]
